FAERS Safety Report 19865362 (Version 1)
Quarter: 2021Q3

REPORT INFORMATION
  Report Type: Report from Study
  Country: IT (occurrence: IT)
  Receive Date: 20210921
  Receipt Date: 20210921
  Transmission Date: 20211014
  Serious: Yes (Other)
  Sender: FDA-Public Use
  Company Number: IT-EMD SERONO-9257838

PATIENT
  Age: 47 Year
  Sex: Female
  Weight: 51 kg

DRUGS (10)
  1. CETUXIMAB. [Suspect]
     Active Substance: CETUXIMAB
     Indication: COLORECTAL CANCER METASTATIC
     Dates: start: 20210412
  2. IRINOTECAN [Suspect]
     Active Substance: IRINOTECAN
     Indication: COLORECTAL CANCER METASTATIC
     Dates: start: 20210412
  3. IRINOTECAN [Suspect]
     Active Substance: IRINOTECAN
     Dates: start: 20210802
  4. OXALIPLATIN. [Suspect]
     Active Substance: OXALIPLATIN
     Indication: COLORECTAL CANCER METASTATIC
     Dates: start: 20210412
  5. 5 FU [Suspect]
     Active Substance: FLUOROURACIL
     Indication: COLORECTAL CANCER METASTATIC
     Dates: start: 20210412
  6. OXALIPLATIN. [Suspect]
     Active Substance: OXALIPLATIN
     Dates: start: 20210802
  7. 5 FU [Suspect]
     Active Substance: FLUOROURACIL
     Dates: start: 20210802
  8. AVELUMAB [Suspect]
     Active Substance: AVELUMAB
     Indication: COLORECTAL CANCER METASTATIC
     Dates: start: 20210412
  9. AVELUMAB [Suspect]
     Active Substance: AVELUMAB
     Dates: start: 20210802
  10. CETUXIMAB. [Suspect]
     Active Substance: CETUXIMAB
     Dates: start: 20210802

REACTIONS (1)
  - Secondary adrenocortical insufficiency [Recovering/Resolving]

NARRATIVE: CASE EVENT DATE: 20210803
